FAERS Safety Report 5087771-9 (Version None)
Quarter: 2006Q3

REPORT INFORMATION
  Report Type: 
  Country: None (occurrence: None)
  Receive Date: 20060824
  Receipt Date: 20060818
  Transmission Date: 20061208
  Serious: Yes (Hospitalization, Other)
  Sender: FDA-Public Use
  Company Number: GB-JNJFOC-20060503564

PATIENT
  Sex: Female
  Weight: 70 kg

DRUGS (12)
  1. REMICADE [Suspect]
     Indication: ANKYLOSING SPONDYLITIS
     Route: 042
  2. PHENYLBUTAZONE [Concomitant]
     Indication: ANKYLOSING SPONDYLITIS
     Route: 048
  3. DF118 [Concomitant]
     Indication: ANKYLOSING SPONDYLITIS
     Route: 065
  4. OMEPRAZOLE [Concomitant]
     Indication: DYSPEPSIA
     Route: 048
  5. PREDNISOLONE [Concomitant]
     Route: 065
  6. METHYLPREDNISOLONE ACETATE [Concomitant]
     Route: 065
  7. ACTONEL [Concomitant]
     Route: 065
  8. AMITRIPTYLINE HCL [Concomitant]
     Route: 065
  9. CYCLOPENTOLATE HCL [Concomitant]
     Route: 065
  10. FERROUS SULFATE TAB [Concomitant]
     Route: 065
  11. KETOROLAC TROMETHAMINE [Concomitant]
     Route: 065
  12. LISINOPRIL [Concomitant]
     Route: 065

REACTIONS (1)
  - RENAL CELL CARCINOMA STAGE UNSPECIFIED [None]
